FAERS Safety Report 5343358-1 (Version None)
Quarter: 2007Q2

REPORT INFORMATION
  Report Type: 
  Country: None (occurrence: None)
  Receive Date: 20070501
  Receipt Date: 20070226
  Transmission Date: 20071010
  Serious: Yes (Disabling, Other)
  Sender: FDA-Public Use
  Company Number: 200611657US

PATIENT
  Age: 21 Year
  Sex: Male
  Weight: 98.63 kg

DRUGS (9)
  1. KETEK [Suspect]
     Indication: SINUSITIS
     Dosage: 800 MG QD PO
     Route: 048
     Dates: start: 20060207, end: 20060214
  2. DEXAMETHASONE 0.5MG TAB [Concomitant]
  3. CETIRIZINE HYDROCHLORIDE (ZYRTEC /00884302/) [Concomitant]
  4. FLUTICASONE PROPIONATE (FLONASE) [Concomitant]
  5. AZELASTINE HYDROCHLORIDE (ASTELIN /00884002/) [Concomitant]
  6. XOPENEX [Concomitant]
  7. FLUTICASONE PROPIONATE, SALMETEROL XINAFOATE (ADVAIR) [Concomitant]
  8. AZITHROMYCIN (ZITHROMAX Z-PACK) [Concomitant]
  9. CORTISONE ACETATE [Concomitant]

REACTIONS (15)
  - ACNE [None]
  - ARTHRALGIA [None]
  - ASPARTATE AMINOTRANSFERASE INCREASED [None]
  - BACK PAIN [None]
  - DIPLOPIA [None]
  - DIZZINESS [None]
  - HEADACHE [None]
  - HYPERHIDROSIS [None]
  - MIGRAINE [None]
  - MYALGIA [None]
  - PAIN IN EXTREMITY [None]
  - PHARYNGITIS [None]
  - PHOTOPHOBIA [None]
  - VISION BLURRED [None]
  - VISUAL DISTURBANCE [None]
